FAERS Safety Report 15204303 (Version 1)
Quarter: 2018Q3

REPORT INFORMATION
  Report Type: Spontaneous
  Country: FR (occurrence: FR)
  Receive Date: 20180726
  Receipt Date: 20180726
  Transmission Date: 20181010
  Serious: Yes (Hospitalization, Other)
  Sender: FDA-Public Use
  Company Number: FR-INDIVIOR LIMITED-INDV-112600-2018

PATIENT
  Age: 26 Year
  Sex: Female

DRUGS (1)
  1. SUBUTEX [Suspect]
     Active Substance: BUPRENORPHINE HYDROCHLORIDE
     Indication: PRODUCT USED FOR UNKNOWN INDICATION
     Dosage: UNK
     Route: 060
     Dates: start: 2018

REACTIONS (6)
  - Intentional product misuse [Recovered/Resolved]
  - Drug dependence [Recovering/Resolving]
  - Threatened labour [Recovered/Resolved]
  - Uterine contractions during pregnancy [Recovered/Resolved]
  - Maternal exposure during pregnancy [Unknown]
  - Withdrawal syndrome [Recovered/Resolved]

NARRATIVE: CASE EVENT DATE: 2018
